FAERS Safety Report 4307441-1 (Version None)
Quarter: 2004Q1

REPORT INFORMATION
  Report Type: 
  Country: None (occurrence: None)
  Receive Date: 20040226
  Receipt Date: 20040218
  Transmission Date: 20041129
  Serious: Yes (Death)
  Sender: FDA-Public Use
  Company Number: GB-JNJFOC-20031204249

PATIENT
  Age: 60 Year
  Sex: Male

DRUGS (9)
  1. REMICADE [Suspect]
     Indication: RHEUMATOID ARTHRITIS
     Dosage: INTRAVENOUS
     Route: 042
     Dates: start: 20020408
  2. METHOTREXATE [Concomitant]
  3. SSZ (ALL OTHER THERAPEUTIC PRODUCTS) [Concomitant]
  4. HCQ (HYDROXYCHLOROQUINE) [Concomitant]
  5. FOLIC ACID [Concomitant]
  6. PERINDOPRIL (PERINDOPRIL) [Concomitant]
  7. BENDROFLUAZIDE (BENDROFLUAZIDE) [Concomitant]
  8. NICARDIPINE (NICARDIPINE) [Concomitant]
  9. ACETAMINOPHEN [Concomitant]

REACTIONS (1)
  - DEATH [None]
